FAERS Safety Report 8610345-7 (Version None)
Quarter: 2012Q3

REPORT INFORMATION
  Report Type: 
  Country: None (occurrence: None)
  Receive Date: 20120822
  Receipt Date: 20120816
  Transmission Date: 20120928
  Serious: Yes (Other)
  Sender: FDA-Public Use
  Company Number: PHHY2012CH071268

PATIENT
  Age: 60 Year
  Sex: Female

DRUGS (3)
  1. CALCIMAGON-D3 [Concomitant]
  2. CRESTOR [Concomitant]
  3. FEMARA [Suspect]
     Indication: BREAST CANCER
     Dosage: 2.5 MG, DAILY
     Dates: start: 20120201, end: 20120305

REACTIONS (7)
  - VISUAL IMPAIRMENT [None]
  - EYE PAIN [None]
  - BLINDNESS [None]
  - OPTIC NEURITIS [None]
  - PAPILLOEDEMA [None]
  - AMBLYOPIA [None]
  - TOXOPLASMA SEROLOGY POSITIVE [None]
